FAERS Safety Report 14445017 (Version 3)
Quarter: 2018Q2

REPORT INFORMATION
  Report Type: Spontaneous
  Country: US (occurrence: US)
  Receive Date: 20180126
  Receipt Date: 20180629
  Transmission Date: 20180711
  Serious: No
  Sender: FDA-Public Use
  Company Number: US-PFIZER INC-2017492667

PATIENT
  Age: 67 Year
  Sex: Female
  Weight: 80 kg

DRUGS (5)
  1. NEURONTIN [Concomitant]
     Active Substance: GABAPENTIN
     Dosage: UNK
  2. FASLODEX [Suspect]
     Active Substance: FULVESTRANT
     Indication: BREAST CANCER METASTATIC
     Dosage: 2 DF, MONTHLY (2 INJECTIONS MONTHLY)
  3. IBRANCE [Suspect]
     Active Substance: PALBOCICLIB
     Indication: BREAST CANCER METASTATIC
     Dosage: 125 MG, CYCLIC, (DAILY FOR 21 DAYS THEN OFF FOR 7 DAYS, REPEAT OF 28 DAYS)
     Route: 048
     Dates: start: 2016, end: 20180416
  4. IBRANCE [Suspect]
     Active Substance: PALBOCICLIB
     Indication: HER-2 POSITIVE BREAST CANCER
     Dosage: 100 MG, 1X/DAY
  5. SENNA [Concomitant]
     Active Substance: SENNA LEAF\SENNOSIDES\SENNOSIDES A AND B
     Indication: CONSTIPATION
     Dosage: 8.6 MG, 1X/DAY (AT NIGHT)
     Route: 048
     Dates: start: 2014

REACTIONS (7)
  - White blood cell count decreased [Not Recovered/Not Resolved]
  - Body height decreased [Not Recovered/Not Resolved]
  - Nasopharyngitis [Recovered/Resolved]
  - Rash [Recovered/Resolved]
  - Weight increased [Not Recovered/Not Resolved]
  - Neutrophil count decreased [Unknown]
  - Keratitis [Not Recovered/Not Resolved]

NARRATIVE: CASE EVENT DATE: 2017
